FAERS Safety Report 5738889-6 (Version None)
Quarter: 2008Q2

REPORT INFORMATION
  Report Type: 
  Country: None (occurrence: None)
  Receive Date: 20080515
  Receipt Date: 20080507
  Transmission Date: 20081010
  Serious: Yes (Other)
  Sender: FDA-Public Use
  Company Number: PHHY2008JP06405

PATIENT
  Sex: Female

DRUGS (2)
  1. TAXOL [Suspect]
     Indication: METASTASES TO BONE
     Dosage: 88 MG, UNK
     Route: 042
     Dates: start: 20071207
  2. ZOMETA [Suspect]
     Indication: METASTASES TO BONE
     Dosage: 4 MG EVERY FOUR WEEKS
     Dates: start: 20071207

REACTIONS (3)
  - APHONIA [None]
  - COUGH [None]
  - VOCAL CORD PARALYSIS [None]
